FAERS Safety Report 8268229-2 (Version None)
Quarter: 2012Q2

REPORT INFORMATION
  Report Type: 
  Country: None (occurrence: None)
  Receive Date: 20120409
  Receipt Date: 20120328
  Transmission Date: 20120825
  Serious: Yes (Other)
  Sender: FDA-Public Use
  Company Number: JP-ROCHE-GNE323672

PATIENT
  Age: 77 Year
  Sex: Male

DRUGS (7)
  1. ACTIVASE [Suspect]
     Indication: THROMBOTIC CEREBRAL INFARCTION
     Dosage: 24 MIU, QD
     Route: 042
     Dates: start: 20110510, end: 20110510
  2. IOPAMIDOL [Suspect]
     Indication: PRODUCT USED FOR UNKNOWN INDICATION
  3. VASODILATOR [Concomitant]
     Indication: PRODUCT USED FOR UNKNOWN INDICATION
  4. RADICUT [Suspect]
     Indication: THROMBOTIC CEREBRAL INFARCTION
     Dosage: UNK
     Dates: start: 20110510, end: 20110511
  5. PLAVIX [Concomitant]
     Indication: PRODUCT USED FOR UNKNOWN INDICATION
     Dosage: UNK
     Route: 048
     Dates: start: 20110511
  6. ASPIRIN [Concomitant]
     Indication: PRODUCT USED FOR UNKNOWN INDICATION
     Dosage: UNK
     Dates: start: 20110511
  7. OZAGREL SODIUM [Concomitant]
     Indication: PRODUCT USED FOR UNKNOWN INDICATION
     Dosage: UNK
     Dates: start: 20110511, end: 20110518

REACTIONS (1)
  - RENAL IMPAIRMENT [None]
